FAERS Safety Report 26151482 (Version 1)
Quarter: 2025Q4

REPORT INFORMATION
  Report Type: Report from Study
  Country: EU (occurrence: EU)
  Receive Date: 20251212
  Receipt Date: 20251212
  Transmission Date: 20260117
  Serious: Yes (Other)
  Sender: TAKEDA
  Company Number: EU-TAKEDA-2025TUS110774

PATIENT
  Sex: Female
  Weight: 79 kg

DRUGS (3)
  1. FRUQUINTINIB [Suspect]
     Active Substance: FRUQUINTINIB
     Indication: Colorectal cancer metastatic
     Dosage: 5 MILLIGRAM
  2. APIXABAN [Concomitant]
     Active Substance: APIXABAN
     Indication: Prophylaxis
     Dosage: 2.5 MILLIGRAM, QD
     Dates: start: 20220131
  3. BISOPROLOL [Concomitant]
     Active Substance: BISOPROLOL
     Indication: Prophylaxis
     Dosage: 5 MILLIGRAM, QD
     Dates: start: 20250131

REACTIONS (3)
  - Polyneuropathy [Not Recovered/Not Resolved]
  - Headache [Not Recovered/Not Resolved]
  - Cancer fatigue [Not Recovered/Not Resolved]

NARRATIVE: CASE EVENT DATE: 20251029
